FAERS Safety Report 25671742 (Version 4)
Quarter: 2025Q4

REPORT INFORMATION
  Report Type: Spontaneous
  Country: JP (occurrence: JP)
  Receive Date: 20250812
  Receipt Date: 20251214
  Transmission Date: 20260118
  Serious: Yes (Death, Hospitalization, Other)
  Sender: AMGEN
  Company Number: JP-AMGEN-JPNSP2025147181

PATIENT
  Sex: Male

DRUGS (2)
  1. IMDELLTRA [Suspect]
     Active Substance: TARLATAMAB-DLLE
     Indication: Small cell lung cancer extensive stage
     Dosage: 1 MILLIGRAM
     Route: 040
     Dates: start: 20250722
  2. IMDELLTRA [Suspect]
     Active Substance: TARLATAMAB-DLLE
     Dosage: 10 MILLIGRAM
     Route: 040
     Dates: start: 20250729

REACTIONS (5)
  - Cytokine release syndrome [Recovered/Resolved]
  - Small cell lung cancer extensive stage [Fatal]
  - Metastases to liver [Unknown]
  - Neutropenia [Recovering/Resolving]
  - Pyrexia [Recovered/Resolved]

NARRATIVE: CASE EVENT DATE: 20250723
